FAERS Safety Report 16803970 (Version 1)
Quarter: 2019Q3

REPORT INFORMATION
  Report Type: Spontaneous
  Country: US (occurrence: US)
  Receive Date: 20190723
  Receipt Date: 20190723
  Transmission Date: 20191005
  Serious: No
  Sender: FDA-Public Use
  Company Number: None

PATIENT
  Age: 72 Year
  Sex: Male
  Weight: 85.28 kg

DRUGS (1)
  1. DOBUTAMINE [Suspect]
     Active Substance: DOBUTAMINE HYDROCHLORIDE
     Indication: CARDIAC OPERATION
     Dates: start: 20190718, end: 20190718

REACTIONS (5)
  - Tremor [None]
  - Dyspnoea [None]
  - Cough [None]
  - Wheezing [None]
  - Chest pain [None]

NARRATIVE: CASE EVENT DATE: 20190718
